FAERS Safety Report 6358852-4 (Version None)
Quarter: 2009Q3

REPORT INFORMATION
  Report Type: 
  Country: None (occurrence: None)
  Receive Date: 20090916
  Receipt Date: 20090911
  Transmission Date: 20100115
  Serious: No
  Sender: FDA-Public Use
  Company Number: US-ABBOTT-09P-163-0597128-00

PATIENT
  Sex: Female
  Weight: 76.726 kg

DRUGS (4)
  1. TRILIPIX [Suspect]
     Indication: LOW DENSITY LIPOPROTEIN INCREASED
     Route: 048
     Dates: start: 20090906, end: 20090910
  2. TRILIPIX [Suspect]
     Indication: HIGH DENSITY LIPOPROTEIN DECREASED
  3. METFORMIN HCL [Concomitant]
     Indication: HYPERINSULINAEMIA
     Dosage: UNKNOWN
     Route: 048
  4. PRAVASTATIN [Concomitant]
     Indication: DRUG USE FOR UNKNOWN INDICATION
     Dosage: UNKNOWN
     Route: 048

REACTIONS (3)
  - OEDEMA [None]
  - PROTEIN TOTAL DECREASED [None]
  - PROTEINURIA [None]
